FAERS Safety Report 5694208-5 (Version None)
Quarter: 2008Q2

REPORT INFORMATION
  Report Type: 
  Country: None (occurrence: None)
  Receive Date: 20080402
  Receipt Date: 20080317
  Transmission Date: 20081010
  Serious: Yes (Congenital Anomaly)
  Sender: FDA-Public Use
  Company Number: 2008VX000736

PATIENT
  Sex: Male

DRUGS (1)
  1. LIBRAX [Suspect]

REACTIONS (5)
  - ADACTYLY [None]
  - CONGENITAL ANOMALY [None]
  - CONGENITAL MUSCULOSKELETAL ANOMALY [None]
  - SKULL MALFORMATION [None]
  - SYNDACTYLY [None]
